FAERS Safety Report 12138371 (Version 1)
Quarter: 2016Q1

REPORT INFORMATION
  Report Type: Report from Study
  Country: DE (occurrence: DE)
  Receive Date: 20160302
  Receipt Date: 20160302
  Transmission Date: 20160526
  Serious: Yes (Other)
  Sender: FDA-Public Use
  Company Number: DE-GILEAD-2016-0199959

PATIENT
  Age: 57 Year
  Sex: Male
  Weight: 120 kg

DRUGS (2)
  1. RIBAVIRIN. [Concomitant]
     Active Substance: RIBAVIRIN
     Indication: HEPATITIS C
     Dosage: 1400 MG, QD
     Route: 048
     Dates: start: 20150427, end: 20150719
  2. LEDIPASVIR/SOFOSBUVIR [Suspect]
     Active Substance: LEDIPASVIR\SOFOSBUVIR
     Indication: HEPATITIS C
     Dosage: 1 DF, QD
     Route: 048
     Dates: start: 20150427, end: 20150719

REACTIONS (4)
  - Hepatic cirrhosis [Unknown]
  - Non-alcoholic fatty liver [Unknown]
  - Hyperuricaemia [Unknown]
  - Obesity [Unknown]
